FAERS Safety Report 9846871 (Version 1)
Quarter: 2014Q1

REPORT INFORMATION
  Report Type: Spontaneous
  Country: BR (occurrence: BR)
  Receive Date: 20140127
  Receipt Date: 20140127
  Transmission Date: 20141002
  Serious: Yes (Other)
  Sender: FDA-Public Use
  Company Number: BR-PFIZER INC-2014021246

PATIENT
  Age: 84 Year
  Sex: Male

DRUGS (3)
  1. CITALOR [Suspect]
     Indication: CARDIAC DISORDER
     Dosage: 40 MG, 1X/DAY (AT NIGHT)
     Route: 048
  2. ASPIRINA [Concomitant]
     Dosage: UNK
     Dates: start: 2004
  3. CARVEDILOL [Concomitant]
     Dosage: UNK
     Dates: start: 2004

REACTIONS (3)
  - Aphasia [Not Recovered/Not Resolved]
  - Depression [Not Recovered/Not Resolved]
  - Malaise [Not Recovered/Not Resolved]
